FAERS Safety Report 7796176-9 (Version None)
Quarter: 2011Q4

REPORT INFORMATION
  Report Type: 
  Country: None (occurrence: None)
  Receive Date: 20111004
  Receipt Date: 20110919
  Transmission Date: 20120403
  Serious: Yes (Hospitalization, Other)
  Sender: FDA-Public Use
  Company Number: JP-TEVA-299945ISR

PATIENT
  Age: 64 Year
  Sex: Male

DRUGS (3)
  1. CISPLATIN [Suspect]
     Indication: TONGUE NEOPLASM MALIGNANT STAGE UNSPECIFIED
     Dosage: 40 MG, ONCE A WEEK FOR 6 COURSES
     Route: 013
  2. SODIUM THIOSULFATE [Suspect]
     Dosage: ONCE A WEEK FOR 6 COURSES
     Route: 042
  3. CISPLATIN [Suspect]
     Indication: OESOPHAGEAL SQUAMOUS CELL CARCINOMA

REACTIONS (2)
  - STOMATITIS [None]
  - LEUKOPENIA [None]
